FAERS Safety Report 24712728 (Version 1)
Quarter: 2024Q4

REPORT INFORMATION
  Report Type: Spontaneous
  Country: US (occurrence: US)
  Receive Date: 20241209
  Receipt Date: 20241209
  Transmission Date: 20250115
  Serious: No
  Sender: Haleon PLC
  Company Number: US-HALEON-2209546

PATIENT
  Age: 63 Year
  Sex: Male

DRUGS (1)
  1. SENSODYNE PRONAMEL GENTLE WHITENING [Suspect]
     Active Substance: POTASSIUM NITRATE\SODIUM FLUORIDE
     Indication: Dental disorder prophylaxis
     Dates: start: 20241102, end: 20241105

REACTIONS (1)
  - Hyperaesthesia teeth [Recovered/Resolved]

NARRATIVE: CASE EVENT DATE: 20241103
